FAERS Safety Report 8278189-6 (Version None)
Quarter: 2012Q2

REPORT INFORMATION
  Report Type: 
  Country: None (occurrence: None)
  Receive Date: 20120412
  Receipt Date: 20110722
  Transmission Date: 20120825
  Serious: No
  Sender: FDA-Public Use
  Company Number: US-ASTRAZENECA-2011SE44566

PATIENT
  Age: 54 Year
  Sex: Male

DRUGS (4)
  1. NEXIUM [Suspect]
     Route: 048
  2. IMITREX [Concomitant]
  3. SEROQUEL [Suspect]
     Route: 048
  4. XANEX [Concomitant]

REACTIONS (2)
  - MEMORY IMPAIRMENT [None]
  - MIGRAINE [None]
